FAERS Safety Report 16545890 (Version 1)
Quarter: 2019Q3

REPORT INFORMATION
  Report Type: Spontaneous
  Country: DE (occurrence: DE)
  Receive Date: 20190709
  Receipt Date: 20190709
  Transmission Date: 20191004
  Serious: Yes (Hospitalization)
  Sender: FDA-Public Use
  Company Number: DE-TEVA-2019-DE-1074149

PATIENT
  Age: 69 Year
  Sex: Male

DRUGS (9)
  1. XIPAMID [Concomitant]
     Active Substance: XIPAMIDE
     Dosage: 20 MG, 1-0-0-0
  2. ENOXAPARIN [Concomitant]
     Active Substance: ENOXAPARIN
     Dosage: 0.4 ML, 0-0-1-0
  3. KALINOR BRAUSE [Concomitant]
     Dosage: 1-1-1-1, BRAUSETABLETTEN
  4. PANTOPRAZOL [Concomitant]
     Active Substance: PANTOPRAZOLE SODIUM
     Dosage: 40 MG, 1-0-1-0
  5. METOPROLOL. [Concomitant]
     Active Substance: METOPROLOL
     Dosage: 23.75 MG, 1-0-0-0
  6. SIMVASTATIN. [Concomitant]
     Active Substance: SIMVASTATIN
     Dosage: 40 MG, 0-0-1-0
  7. TORASEMID [Concomitant]
     Active Substance: TORSEMIDE
     Dosage: 10 MG, 1-1-0-0
  8. CLOPIDOGREL [Concomitant]
     Active Substance: CLOPIDOGREL BISULFATE
     Dosage: 75 MG, 1-0-0-0
  9. AMIODARON [Suspect]
     Active Substance: AMIODARONE
     Dosage: 200 MG, 1-0-0-0
     Route: 065

REACTIONS (2)
  - Oedema peripheral [Unknown]
  - Dyspnoea [Unknown]
